FAERS Safety Report 11884456 (Version 1)
Quarter: 2015Q4

REPORT INFORMATION
  Report Type: Spontaneous
  Country: US (occurrence: None)
  Receive Date: 20151231
  Receipt Date: 20151231
  Transmission Date: 20160305
  Serious: Yes (Other)
  Sender: FDA-Public Use
  Company Number: None

PATIENT
  Age: 63 Year
  Sex: Male
  Weight: 100 kg

DRUGS (18)
  1. ADENOSINE 90MG/30ML TEVA [Suspect]
     Active Substance: ADENOSINE
     Indication: CARDIAC STRESS TEST
     Route: 042
     Dates: start: 20151229, end: 20151229
  2. ACETAMINOPHEN. [Concomitant]
     Active Substance: ACETAMINOPHEN
  3. AMLODIPINE [Concomitant]
     Active Substance: AMLODIPINE BESYLATE
  4. DOCUSATE [Concomitant]
     Active Substance: DOCUSATE
  5. LANTUS [Concomitant]
     Active Substance: INSULIN GLARGINE
  6. VENLAFAXINE [Concomitant]
     Active Substance: VENLAFAXINE HYDROCHLORIDE
  7. MILK OF MAGNESIA [Concomitant]
     Active Substance: MAGNESIUM HYDROXIDE
  8. METOPROLOL [Concomitant]
     Active Substance: METOPROLOL
  9. ATROVASTATIN [Concomitant]
     Active Substance: ATORVASTATIN CALCIUM
  10. PHOSLO [Concomitant]
     Active Substance: CALCIUM ACETATE
  11. CYANOCOBALAMIN. [Concomitant]
     Active Substance: CYANOCOBALAMIN
  12. CEPHALEXIN. [Concomitant]
     Active Substance: CEPHALEXIN
  13. ASPIRIN. [Concomitant]
     Active Substance: ASPIRIN
  14. BISACODYL. [Concomitant]
     Active Substance: BISACODYL
  15. FUROSEMIDE. [Concomitant]
     Active Substance: FUROSEMIDE
  16. LEVOTHYROXINE. [Concomitant]
     Active Substance: LEVOTHYROXINE
  17. INSULIN [Concomitant]
     Active Substance: INSULIN NOS
  18. OMEPRAZOLE. [Concomitant]
     Active Substance: OMEPRAZOLE

REACTIONS (1)
  - Blindness [None]

NARRATIVE: CASE EVENT DATE: 20151229
